FAERS Safety Report 23099116 (Version 4)
Quarter: 2023Q4

REPORT INFORMATION
  Report Type: Report from Study
  Country: DE (occurrence: None)
  Receive Date: 20231024
  Receipt Date: 20231130
  Transmission Date: 20240109
  Serious: Yes (Hospitalization)
  Sender: FDA-Public Use
  Company Number: DE-ROCHE-3444672

PATIENT
  Age: 46 Year
  Sex: Male

DRUGS (11)
  1. ATEZOLIZUMAB [Suspect]
     Active Substance: ATEZOLIZUMAB
     Indication: Metastatic neoplasm
     Dosage: THE SUBJECT ALSO RECEIVED THE SUBSEQUENT DOSES OF ATEZOLIZUMAB ON 13/SEP/2023 AND 05/OCT/2023?THE SU
     Route: 041
     Dates: start: 20230823, end: 20230823
  2. ATEZOLIZUMAB [Suspect]
     Active Substance: ATEZOLIZUMAB
     Route: 041
     Dates: start: 20230913, end: 20230913
  3. ATEZOLIZUMAB [Suspect]
     Active Substance: ATEZOLIZUMAB
     Route: 041
     Dates: start: 20231005, end: 20231005
  4. LEVETIRACETAM [Concomitant]
     Active Substance: LEVETIRACETAM
     Dates: start: 2022
  5. APIXABAN [Concomitant]
     Active Substance: APIXABAN
     Dates: start: 2006
  6. CALCITRIOL [Concomitant]
     Active Substance: CALCITRIOL
     Dates: start: 2021
  7. RAMIPRIL [Concomitant]
     Active Substance: RAMIPRIL
     Dates: start: 20230913
  8. TILIDINE [Concomitant]
     Active Substance: TILIDINE
     Dates: start: 20230925
  9. ACETAMINOPHEN [Concomitant]
     Active Substance: ACETAMINOPHEN
     Dates: start: 20230920, end: 202310
  10. MOVICOL [Concomitant]
     Active Substance: POLYETHYLENE GLYCOL 3350\POTASSIUM CHLORIDE\SODIUM BICARBONATE\SODIUM CHLORIDE
     Dates: start: 20230927, end: 20231010
  11. PANTOPRAZOLE SODIUM [Concomitant]
     Active Substance: PANTOPRAZOLE SODIUM
     Dates: start: 202310

REACTIONS (1)
  - Postrenal failure [Recovered/Resolved]

NARRATIVE: CASE EVENT DATE: 20231017
